FAERS Safety Report 5525539-7 (Version None)
Quarter: 2007Q4

REPORT INFORMATION
  Report Type: 
  Country: None (occurrence: None)
  Receive Date: 20071126
  Receipt Date: 20071120
  Transmission Date: 20080405
  Serious: Yes (Hospitalization)
  Sender: FDA-Public Use
  Company Number: B0364733A

PATIENT
  Age: 83 Year
  Sex: Female
  Weight: 38 kg

DRUGS (3)
  1. PAXIL [Suspect]
     Indication: DEMENTIA ALZHEIMER'S TYPE
     Route: 048
     Dates: start: 20040709, end: 20050106
  2. GRAMALIL [Suspect]
     Indication: DEMENTIA ALZHEIMER'S TYPE
     Dosage: 25MG PER DAY
     Route: 048
     Dates: start: 20040113, end: 20060429
  3. RISPERDAL [Suspect]
     Indication: DEMENTIA ALZHEIMER'S TYPE
     Route: 048
     Dates: start: 20040113, end: 20061206

REACTIONS (11)
  - BLEEDING TIME PROLONGED [None]
  - EOSINOPHIL COUNT DECREASED [None]
  - EPISTAXIS [None]
  - FATIGUE [None]
  - HAEMATOCRIT DECREASED [None]
  - MALAISE [None]
  - MONOCYTE COUNT INCREASED [None]
  - NEUTROPHIL COUNT INCREASED [None]
  - PANCYTOPENIA [None]
  - RED BLOOD CELL COUNT DECREASED [None]
  - WHITE BLOOD CELL COUNT DECREASED [None]
